FAERS Safety Report 4654841-6 (Version None)
Quarter: 2005Q2

REPORT INFORMATION
  Report Type: 
  Country: None (occurrence: None)
  Receive Date: 20050504
  Receipt Date: 20050426
  Transmission Date: 20051028
  Serious: Yes (Hospitalization, Other)
  Sender: FDA-Public Use
  Company Number: 2005046300

PATIENT
  Age: 76 Year
  Sex: Female
  Weight: 53 kg

DRUGS (6)
  1. CARDENALIN (DOXAZOSIN) [Suspect]
     Indication: HYPERTENSION
     Dosage: 2 MG (2 MG QD) ORAL
     Route: 048
     Dates: start: 20050316
  2. CARVEDILOL [Suspect]
     Indication: HYPERTENSION
     Dosage: 20 MG (20 MG QD) ORAL
     Route: 048
     Dates: start: 20050316
  3. MINOCYCLINE HYDROCHLORIDE [Concomitant]
  4. SODIUM BICARBONATE [Concomitant]
  5. DIFENIDOL HYDROCHLORIDE [Concomitant]
  6. ACETYL SALICYLIC ACID USP BAT [Concomitant]

REACTIONS (6)
  - BLOOD PRESSURE SYSTOLIC INCREASED [None]
  - BRONCHITIS [None]
  - CEREBRAL INFARCTION [None]
  - LOSS OF CONSCIOUSNESS [None]
  - ORTHOSTATIC HYPOTENSION [None]
  - VERTIGO [None]
